FAERS Safety Report 4720915-4 (Version None)
Quarter: 2005Q3

REPORT INFORMATION
  Report Type: 
  Country: None (occurrence: None)
  Receive Date: 20050720
  Receipt Date: 20050712
  Transmission Date: 20060218
  Serious: Yes (Hospitalization)
  Sender: FDA-Public Use
  Company Number: RS005332-F

PATIENT
  Age: 79 Year
  Sex: Male
  Weight: 59 kg

DRUGS (2)
  1. RABEPRAZOLE SODIUM [Suspect]
     Indication: OESOPHAGITIS
     Dosage: 10 MG, 1 IN 1 D, ORAL
     Route: 048
     Dates: start: 20040201, end: 20050531
  2. MEMANTINE HCL [Suspect]
     Indication: DEMENTIA ALZHEIMER'S TYPE
     Dosage: 20 MG, ORAL
     Route: 048
     Dates: start: 20041130, end: 20050531

REACTIONS (3)
  - BLOOD CREATININE INCREASED [None]
  - HOMICIDAL IDEATION [None]
  - PHYSICAL ASSAULT [None]
